FAERS Safety Report 10101745 (Version 1)
Quarter: 2014Q2

REPORT INFORMATION
  Report Type: Spontaneous
  Country: US (occurrence: None)
  Receive Date: 20140423
  Receipt Date: 20140423
  Transmission Date: 20141212
  Serious: No
  Sender: FDA-Public Use
  Company Number: None

PATIENT
  Age: 69 Year
  Sex: Male
  Weight: 84.8 kg

DRUGS (1)
  1. ERTAPENEM [Suspect]
     Indication: CELLULITIS
     Route: 042
     Dates: start: 20140327, end: 20140401

REACTIONS (3)
  - Generalised tonic-clonic seizure [None]
  - Anticonvulsant drug level decreased [None]
  - Drug interaction [None]
